FAERS Safety Report 11283165 (Version 1)
Quarter: 2015Q3

REPORT INFORMATION
  Report Type: Spontaneous
  Country: US (occurrence: None)
  Receive Date: 20150717
  Receipt Date: 20150717
  Transmission Date: 20151125
  Serious: No
  Sender: FDA-Public Use
  Company Number: None

PATIENT
  Age: 70 Year
  Sex: Female
  Weight: 61.69 kg

DRUGS (8)
  1. NEXIUM [Concomitant]
     Active Substance: ESOMEPRAZOLE MAGNESIUM
  2. CLONAZEPAM. [Concomitant]
     Active Substance: CLONAZEPAM
  3. TOPIRAMATE. [Concomitant]
     Active Substance: TOPIRAMATE
  4. VENLAFAXINE ER 150 MG TEVA USA [Suspect]
     Active Substance: VENLAFAXINE HYDROCHLORIDE
     Indication: DEPRESSION
     Dosage: ONE CAPSULE, ONCE DAILY, TAKEN BY MOUTH
     Route: 048
     Dates: start: 20150603, end: 20150603
  5. MULTI-VITS [Concomitant]
  6. RANITIDINE [Concomitant]
     Active Substance: RANITIDINE\RANITIDINE HYDROCHLORIDE
  7. TRAZODONE [Concomitant]
     Active Substance: TRAZODONE HYDROCHLORIDE
  8. VIT B-12 [Concomitant]

REACTIONS (6)
  - Nausea [None]
  - Abdominal pain upper [None]
  - Abdominal distension [None]
  - Feeling abnormal [None]
  - Abnormal dreams [None]
  - Fatigue [None]

NARRATIVE: CASE EVENT DATE: 20150603
